FAERS Safety Report 5861753-9 (Version None)
Quarter: 2008Q3

REPORT INFORMATION
  Report Type: 
  Country: None (occurrence: None)
  Receive Date: 20080826
  Receipt Date: 20080812
  Transmission Date: 20090109
  Serious: Yes (Hospitalization)
  Sender: FDA-Public Use
  Company Number: 1-16514521

PATIENT
  Sex: Female

DRUGS (7)
  1. CITALOPRAM HYDROBROMIDE [Suspect]
     Indication: ANXIETY
     Dosage: 20 MG DAILY, ORAL
     Route: 048
     Dates: start: 20060101
  2. PROPAFENONE HCL [Suspect]
     Indication: ATRIAL FIBRILLATION
     Dosage: 900 MG DAILY, ORAL
     Route: 048
     Dates: start: 19960101
  3. DIGOXIN [Concomitant]
  4. ISOSORBIDE DINITRATE [Concomitant]
  5. SPIRONOLACTONE/HYDROCHLOROTHIAZIDE [Concomitant]
  6. SIMVASTATIN [Concomitant]
  7. ACETYLSALICYLIC ACID SRT [Concomitant]

REACTIONS (8)
  - BRADYCARDIA [None]
  - CHEST DISCOMFORT [None]
  - CONTUSION [None]
  - DELIRIUM [None]
  - DEMENTIA [None]
  - DIZZINESS [None]
  - DRUG INTERACTION [None]
  - FALL [None]
